FAERS Safety Report 4389344-X (Version None)
Quarter: 2004Q2

REPORT INFORMATION
  Report Type: 
  Country: None (occurrence: None)
  Receive Date: 20040630
  Receipt Date: 20040614
  Transmission Date: 20050107
  Serious: Yes (Hospitalization)
  Sender: FDA-Public Use
  Company Number: 2004220428FR

PATIENT
  Age: 34 Year
  Sex: Male

DRUGS (7)
  1. NEO-TIZIDE (ISONIAZID) TABLET [Suspect]
     Dosage: 200 MG, DAILY, ORAL
     Route: 048
     Dates: start: 20040420, end: 20040504
  2. DELTASONE [Suspect]
     Dosage: 100 MG, DAILY, ORAL;  20 MG, DAILY ORAL
     Route: 048
     Dates: start: 20040420, end: 20040504
  3. ALGEDOL (MORPHINE) TABLET [Suspect]
     Dosage: 120 MG, DAILY, ORAL
     Route: 048
     Dates: start: 20040420
  4. KETOPROFEN [Suspect]
     Dosage: 300 MG, DAILY, ORAL
     Route: 048
     Dates: start: 20040420, end: 20040513
  5. RIFAMPICIN [Suspect]
     Dosage: 600 MG, DAILY,
     Dates: start: 20040420, end: 20040504
  6. FLUOXETINE [Suspect]
     Dosage: 20 MG, DALY,
     Dates: start: 20040420
  7. IMMUCYST [Concomitant]

REACTIONS (1)
  - MANIA [None]
